FAERS Safety Report 6195733-3 (Version None)
Quarter: 2009Q2

REPORT INFORMATION
  Report Type: 
  Country: None (occurrence: None)
  Receive Date: 20090520
  Receipt Date: 20090515
  Transmission Date: 20091009
  Serious: Yes (Hospitalization)
  Sender: FDA-Public Use
  Company Number: US-BRISTOL-MYERS SQUIBB COMPANY-14627020

PATIENT
  Age: 61 Year
  Sex: Male
  Weight: 89 kg

DRUGS (3)
  1. CISPLATIN [Suspect]
     Indication: OESOPHAGEAL ADENOCARCINOMA
     Dosage: FIRST TAKEN ON 14-APR-2009
     Dates: start: 20090504, end: 20090504
  2. TAXOL [Suspect]
     Indication: OESOPHAGEAL ADENOCARCINOMA
     Dosage: FIRST TAKEN ON 14-APR-2009
     Dates: start: 20090505, end: 20090505
  3. RADIATION THERAPY [Suspect]
     Indication: OESOPHAGEAL ADENOCARCINOMA
     Dosage: FIRST TAKEN ON 14-APR-2009 1 DF=3492 CGY
     Dates: start: 20090508, end: 20090508

REACTIONS (4)
  - DEHYDRATION [None]
  - NAUSEA [None]
  - ODYNOPHAGIA [None]
  - OESOPHAGITIS [None]
